APPROVED DRUG PRODUCT: IPRATROPIUM BROMIDE
Active Ingredient: IPRATROPIUM BROMIDE
Strength: 0.02%
Dosage Form/Route: SOLUTION;INHALATION
Application: A074755 | Product #001
Applicant: PHARMOBEDIENT CONSULTING LLC
Approved: Jan 10, 1997 | RLD: No | RS: No | Type: DISCN